FAERS Safety Report 7713592-1 (Version None)
Quarter: 2011Q3

REPORT INFORMATION
  Report Type: 
  Country: None (occurrence: None)
  Receive Date: 20110826
  Receipt Date: 20110823
  Transmission Date: 20111222
  Serious: Yes (Other)
  Sender: FDA-Public Use
  Company Number: JP-PFIZER INC-2011187677

PATIENT
  Age: 41 Year
  Sex: Female
  Weight: 63 kg

DRUGS (4)
  1. VARENICLINE TARTRATE [Suspect]
     Dosage: 1 MG, 2X/DAY
     Route: 048
     Dates: start: 20110801, end: 20110815
  2. CEFPODOXIME PROXETIL [Suspect]
     Dosage: 100 MG, 2X/DAY
     Route: 048
     Dates: start: 20110712, end: 20110714
  3. VARENICLINE TARTRATE [Suspect]
     Dosage: 0.5 MG, 2X/DAY
     Route: 048
     Dates: start: 20110729, end: 20110731
  4. VARENICLINE TARTRATE [Suspect]
     Indication: SMOKING CESSATION THERAPY
     Dosage: 0.5 MG, 1X/DAY
     Route: 048
     Dates: start: 20110726, end: 20110728

REACTIONS (13)
  - ERYTHEMA MULTIFORME [None]
  - BLISTER [None]
  - PIGMENTATION DISORDER [None]
  - OEDEMA MUCOSAL [None]
  - WHITE BLOOD CELL COUNT INCREASED [None]
  - PURPURA [None]
  - SKIN LESION [None]
  - TOXIC SKIN ERUPTION [None]
  - PRURITUS [None]
  - RASH [None]
  - NEUTROPHIL COUNT INCREASED [None]
  - CONJUNCTIVAL HYPERAEMIA [None]
  - LYMPHOCYTE COUNT DECREASED [None]
